FAERS Safety Report 15938000 (Version 1)
Quarter: 2019Q1

REPORT INFORMATION
  Report Type: Spontaneous
  Country: US (occurrence: US)
  Receive Date: 20190208
  Receipt Date: 20190208
  Transmission Date: 20190417
  Serious: No
  Sender: FDA-Public Use
  Company Number: US-ROCHE-2173228

PATIENT
  Age: 87 Year
  Sex: Female
  Weight: 59.93 kg

DRUGS (4)
  1. XOLAIR [Suspect]
     Active Substance: OMALIZUMAB
     Indication: URTICARIA
     Dosage: ONGOING: YES
     Route: 065
     Dates: start: 201807
  2. ADVIL [Concomitant]
     Active Substance: IBUPROFEN
     Dosage: ONGOING: YES
     Route: 065
  3. LIBRIUM [Concomitant]
     Active Substance: CHLORDIAZEPOXIDE HYDROCHLORIDE
     Indication: DEPRESSION
     Dosage: ONGOING: YES
     Route: 065
  4. ASPIRIN. [Concomitant]
     Active Substance: ASPIRIN
     Dosage: ONGOING: YES
     Route: 065

REACTIONS (3)
  - Pruritus [Not Recovered/Not Resolved]
  - Thermal burn [Not Recovered/Not Resolved]
  - Urticaria [Not Recovered/Not Resolved]

NARRATIVE: CASE EVENT DATE: 20180818
